FAERS Safety Report 8089055-3 (Version None)
Quarter: 2012Q1

REPORT INFORMATION
  Report Type: 
  Country: None (occurrence: None)
  Receive Date: 20120128
  Receipt Date: 20110701
  Transmission Date: 20120608
  Serious: No
  Sender: FDA-Public Use
  Company Number: US-ABBOTT-11P-163-0716752-00

PATIENT
  Sex: Female
  Weight: 81.72 kg

DRUGS (3)
  1. MULTI-VITAMIN [Concomitant]
     Indication: VITAMIN SUPPLEMENTATION
     Dosage: ONE DAILY
  2. ASACOL [Concomitant]
     Indication: CROHN'S DISEASE
     Dosage: UNKNOWN DOSE - 3 DAILY
  3. HUMIRA [Suspect]
     Indication: CROHN'S DISEASE
     Route: 058
     Dates: start: 20110101, end: 20110430

REACTIONS (3)
  - HEADACHE [None]
  - LOWER EXTREMITY MASS [None]
  - VISION BLURRED [None]
